FAERS Safety Report 17647254 (Version 5)
Quarter: 2025Q1

REPORT INFORMATION
  Report Type: Spontaneous
  Country: IT (occurrence: IT)
  Receive Date: 20200408
  Receipt Date: 20250107
  Transmission Date: 20250408
  Serious: Yes (Life-Threatening, Hospitalization, Other)
  Sender: AUROBINDO
  Company Number: IT-AUROBINDO-AUR-APL-2020-016568

PATIENT
  Age: 5 Year
  Sex: Female

DRUGS (18)
  1. CARBOPLATIN [Suspect]
     Active Substance: CARBOPLATIN
     Indication: Neuroblastoma
     Route: 065
     Dates: start: 201507
  2. CARBOPLATIN [Suspect]
     Active Substance: CARBOPLATIN
     Route: 065
     Dates: start: 201507, end: 201603
  3. IRINOTECAN [Suspect]
     Active Substance: IRINOTECAN
     Indication: Neuroblastoma
     Route: 065
     Dates: start: 201607, end: 201801
  4. IRINOTECAN [Suspect]
     Active Substance: IRINOTECAN
     Route: 065
     Dates: start: 201607, end: 201812
  5. MELPHALAN [Suspect]
     Active Substance: MELPHALAN
     Indication: Neuroblastoma
     Route: 065
     Dates: start: 201507
  6. MELPHALAN [Suspect]
     Active Substance: MELPHALAN
     Indication: Stem cell transplant
     Route: 065
     Dates: start: 2016
  7. MELPHALAN [Suspect]
     Active Substance: MELPHALAN
     Route: 065
     Dates: start: 201603
  8. BUSULFAN [Suspect]
     Active Substance: BUSULFAN
     Indication: Neuroblastoma
     Route: 065
     Dates: start: 201507
  9. BUSULFAN [Suspect]
     Active Substance: BUSULFAN
     Indication: Stem cell transplant
     Route: 065
     Dates: start: 201603
  10. CISPLATIN [Suspect]
     Active Substance: CISPLATIN
     Indication: Neuroblastoma
     Route: 065
     Dates: start: 201507, end: 201603
  11. CYCLOPHOSPHAMIDE [Suspect]
     Active Substance: CYCLOPHOSPHAMIDE
     Indication: Neuroblastoma
     Route: 065
     Dates: start: 201507, end: 201603
  12. DINUTUXIMAB [Suspect]
     Active Substance: DINUTUXIMAB
     Indication: Neuroblastoma
     Route: 065
     Dates: start: 201507
  13. DINUTUXIMAB [Suspect]
     Active Substance: DINUTUXIMAB
     Route: 065
     Dates: start: 2016
  14. DINUTUXIMAB [Suspect]
     Active Substance: DINUTUXIMAB
     Route: 065
     Dates: start: 2016
  15. ETOPOSIDE [Suspect]
     Active Substance: ETOPOSIDE
     Indication: Neuroblastoma
     Route: 065
     Dates: start: 201507, end: 201603
  16. TEMOZOLOMIDE [Suspect]
     Active Substance: TEMOZOLOMIDE
     Indication: Neuroblastoma
     Route: 065
     Dates: start: 201607, end: 201801
  17. TEMOZOLOMIDE [Suspect]
     Active Substance: TEMOZOLOMIDE
     Route: 065
     Dates: start: 201607, end: 201812
  18. VINCRISTINE [Suspect]
     Active Substance: VINCRISTINE
     Indication: Neuroblastoma
     Route: 065
     Dates: start: 201507, end: 201603

REACTIONS (12)
  - Fungaemia [Unknown]
  - Myelosuppression [Unknown]
  - Respiratory tract infection fungal [Not Recovered/Not Resolved]
  - Staphylococcal infection [Recovered/Resolved]
  - Device related infection [Recovered/Resolved]
  - Myelosuppression [Unknown]
  - Immunodeficiency [Unknown]
  - Drug ineffective [Unknown]
  - Drug resistance [Unknown]
  - Pyrexia [Unknown]
  - C-reactive protein increased [Unknown]
  - Product use in unapproved indication [Unknown]

NARRATIVE: CASE EVENT DATE: 20160301
